FAERS Safety Report 18618494 (Version 1)
Quarter: 2020Q4

REPORT INFORMATION
  Report Type: Spontaneous
  Country: AU (occurrence: AU)
  Receive Date: 20201215
  Receipt Date: 20201215
  Transmission Date: 20210114
  Serious: Yes (Hospitalization, Other)
  Sender: FDA-Public Use
  Company Number: AU-009507513-2012AUS005241

PATIENT
  Age: 98 Year
  Sex: Female
  Weight: 55 kg

DRUGS (24)
  1. ALENDRONATE SODIUM. [Suspect]
     Active Substance: ALENDRONATE SODIUM
     Indication: PRODUCT USED FOR UNKNOWN INDICATION
     Dosage: UNK
     Route: 065
     Dates: start: 201002, end: 201211
  2. VENTOLIN [Concomitant]
     Active Substance: ALBUTEROL SULFATE
     Dosage: 1 DF, QID, P.R.N THROUGH NEBULISER
  3. BACTROBAN [Concomitant]
     Active Substance: MUPIROCIN\MUPIROCIN CALCIUM
     Dosage: UNK UNK, QD
  4. SYSTANE (HYPROMELLOSE 2910 (4000 MPA.S)) [Concomitant]
     Active Substance: HYPROMELLOSE 2910 (4000 MPA.S)
     Dosage: 2 DROPS, QH, P.R.N
  5. FORTEO [Concomitant]
     Active Substance: TERIPARATIDE
  6. TRIAMCINOLONE [Concomitant]
     Active Substance: TRIAMCINOLONE
     Dosage: UNK UNK, TID, P.R.N
  7. ATROVENT [Concomitant]
     Active Substance: IPRATROPIUM BROMIDE
     Dosage: 500 MCG/ML, BID
  8. OSTEOMOL [Concomitant]
     Dosage: 2 DF, TID, P.R.N
  9. ANORO ELLIPTA [Concomitant]
     Active Substance: UMECLIDINIUM BROMIDE\VILANTEROL TRIFENATATE
     Dosage: 25 MCG, QD
  10. ZANTAC [Concomitant]
     Active Substance: RANITIDINE HYDROCHLORIDE
     Indication: NAUSEA
     Dosage: 150 MG, AS NECESSARY
  11. LYRICA [Concomitant]
     Active Substance: PREGABALIN
     Indication: NEURALGIA
     Dosage: 25 MG, QD (IN THE EVENING)
  12. TARGIN [Concomitant]
     Active Substance: NALOXONE HYDROCHLORIDE\OXYCODONE HYDROCHLORIDE
     Dosage: 1 DF, BID
  13. VENTOLIN [Concomitant]
     Active Substance: ALBUTEROL SULFATE
     Dosage: 2 PUFFS, QID, P.R.N
  14. PREDNISOLONE. [Suspect]
     Active Substance: PREDNISOLONE
     Indication: POLYMYALGIA RHEUMATICA
     Dosage: 3 MILLIGRAM, QD
     Route: 048
     Dates: start: 20170209
  15. MIRTAZAPINE. [Concomitant]
     Active Substance: MIRTAZAPINE
     Dosage: 15 MG, QD (IN THE EVENING)
  16. NEO B12 [Concomitant]
     Active Substance: HYDROXOCOBALAMIN
     Dosage: 1 MG/ML, Q2MO
  17. PROLIA [Suspect]
     Active Substance: DENOSUMAB
     Indication: OSTEOPOROSIS POSTMENOPAUSAL
     Dosage: 60 MG, Q6MO
     Route: 058
     Dates: start: 20131108, end: 20180626
  18. TEMAZE [Concomitant]
     Active Substance: TEMAZEPAM
     Dosage: 5 MG, QD, P.R.N
  19. PREDNISONE. [Concomitant]
     Active Substance: PREDNISONE
     Dosage: 3 DF, QD (IN THE MORNING)
  20. LASIX M [Concomitant]
     Active Substance: FUROSEMIDE
     Dosage: 20 MG, QD, P.R.N
  21. PREDNISOLONE. [Suspect]
     Active Substance: PREDNISOLONE
     Indication: CHRONIC OBSTRUCTIVE PULMONARY DISEASE
     Dosage: UNK
  22. NOTEN [Concomitant]
     Active Substance: ATENOLOL
     Dosage: 25 MG, QD
  23. ELOCON [Concomitant]
     Active Substance: MOMETASONE FUROATE
     Dosage: UNK UNK, QD
  24. DBL ASPIRIN [Concomitant]
     Dosage: 100 MG, 3 TIMES/WK

REACTIONS (6)
  - Rib fracture [Unknown]
  - Renal impairment [Unknown]
  - Dystrophic calcification [Unknown]
  - Cerebrovascular accident [Unknown]
  - Atypical femur fracture [Not Recovered/Not Resolved]
  - Osteoporotic fracture [Unknown]

NARRATIVE: CASE EVENT DATE: 2016
